FAERS Safety Report 9705879 (Version 2)
Quarter: 2014Q2

REPORT INFORMATION
  Report Type: Spontaneous
  Country: NL (occurrence: NL)
  Receive Date: 20131122
  Receipt Date: 20140415
  Transmission Date: 20141212
  Serious: Yes (Other)
  Sender: FDA-Public Use
  Company Number: NL-ASTRAZENECA-2013SE84797

PATIENT
  Age: 30856 Day
  Sex: Female

DRUGS (4)
  1. FASLODEX [Suspect]
     Indication: BREAST CANCER METASTATIC
     Route: 030
     Dates: start: 20131004
  2. FASLODEX [Suspect]
     Indication: BREAST CANCER METASTATIC
     Route: 030
     Dates: start: 20131018
  3. FASLODEX [Suspect]
     Indication: BREAST CANCER METASTATIC
     Route: 030
     Dates: start: 20131115
  4. FASLODEX [Suspect]
     Indication: BREAST CANCER METASTATIC
     Route: 030
     Dates: start: 20140404

REACTIONS (4)
  - Fall [Recovering/Resolving]
  - Pelvic fracture [Recovering/Resolving]
  - Contusion [Recovering/Resolving]
  - Rash [Not Recovered/Not Resolved]
